FAERS Safety Report 24726308 (Version 1)
Quarter: 2024Q4

REPORT INFORMATION
  Report Type: Spontaneous
  Country: FR (occurrence: FR)
  Receive Date: 20241212
  Receipt Date: 20241212
  Transmission Date: 20250115
  Serious: Yes (Hospitalization)
  Sender: TEVA
  Company Number: None

PATIENT
  Age: 55 Year
  Sex: Female
  Weight: 76.8 kg

DRUGS (3)
  1. QUETIAPINE [Suspect]
     Active Substance: QUETIAPINE
     Indication: Mixed anxiety and depressive disorder
     Dosage: LP 600 MG/D
     Route: 048
     Dates: start: 20240328, end: 20241022
  2. LOXAPINE [Suspect]
     Active Substance: LOXAPINE
     Indication: Mixed anxiety and depressive disorder
     Route: 048
     Dates: start: 202407, end: 20241022
  3. EFFEXOR [Suspect]
     Active Substance: VENLAFAXINE HYDROCHLORIDE
     Indication: Mixed anxiety and depressive disorder
     Dosage: LP 75 MG/DAY, EFFEXOR L.P.
     Route: 048
     Dates: start: 20240306, end: 20241023

REACTIONS (2)
  - Neuroleptic malignant syndrome [Recovering/Resolving]
  - Drug level increased [Recovering/Resolving]

NARRATIVE: CASE EVENT DATE: 20241022
